FAERS Safety Report 6985661-5 (Version None)
Quarter: 2010Q3

REPORT INFORMATION
  Report Type: 
  Country: None (occurrence: None)
  Receive Date: 20100915
  Receipt Date: 20100907
  Transmission Date: 20110219
  Serious: Yes (Life-Threatening, Hospitalization, Other)
  Sender: FDA-Public Use
  Company Number: US-JNJFOC-20100805708

PATIENT
  Sex: Female
  Weight: 71.67 kg

DRUGS (4)
  1. NUCYNTA [Suspect]
     Indication: ANALGESIC THERAPY
     Route: 048
  2. SOMA [Interacting]
     Indication: MUSCLE SPASMS
     Route: 065
  3. OXYCONTIN [Concomitant]
     Indication: PAIN
     Route: 065
  4. PERCOCET [Concomitant]
     Indication: PAIN
     Route: 065

REACTIONS (3)
  - DRUG INTERACTION [None]
  - DRUG WITHDRAWAL SYNDROME [None]
  - GRAND MAL CONVULSION [None]
